FAERS Safety Report 18888367 (Version 3)
Quarter: 2021Q3

REPORT INFORMATION
  Report Type: Spontaneous
  Country: FR (occurrence: FR)
  Receive Date: 20210212
  Receipt Date: 20210907
  Transmission Date: 20211014
  Serious: Yes (Other)
  Sender: FDA-Public Use
  Company Number: FR-MYLANLABS-2021M1008705

PATIENT
  Age: 37 Year
  Sex: Male
  Weight: 70 kg

DRUGS (7)
  1. CARBAMAZEPINE. [Suspect]
     Active Substance: CARBAMAZEPINE
     Dosage: 2 DOSAGE FORM, QD, EVERY 12 HRS
     Route: 065
  2. DEPAKINE CHRONO [Suspect]
     Active Substance: VALPROATE SODIUM
     Indication: EPILEPSY
     Dosage: (1 DF, BID) 1250 MILLIGRAM, QD
     Route: 048
  3. DEPAKINE CHRONO [Suspect]
     Active Substance: VALPROATE SODIUM
     Indication: LENNOX-GASTAUT SYNDROME
     Dosage: 2 DOSAGE FORM
  4. TOPIRAMATE. [Suspect]
     Active Substance: TOPIRAMATE
     Indication: PRODUCT USED FOR UNKNOWN INDICATION
     Dosage: (2 DF, QD) 200 MILLIGRAM, QD
     Route: 048
  5. EPITOMAX [Suspect]
     Active Substance: TOPIRAMATE
     Indication: PRODUCT USED FOR UNKNOWN INDICATION
     Dosage: 200 MILLIGRAM, QD
     Route: 048
  6. CARBAMAZEPINE. [Suspect]
     Active Substance: CARBAMAZEPINE
     Indication: PRODUCT USED FOR UNKNOWN INDICATION
     Dosage: (1 DF, BID) 800 MILLIGRAM, QD
     Route: 048
  7. EPITOMAX [Suspect]
     Active Substance: TOPIRAMATE
     Dosage: 2 DOSAGE FORM

REACTIONS (3)
  - Epilepsy [Not Recovered/Not Resolved]
  - Product residue present [Unknown]
  - Drug ineffective [Unknown]
